FAERS Safety Report 10540553 (Version 2)
Quarter: 2014Q4

REPORT INFORMATION
  Report Type: Spontaneous
  Country: US (occurrence: US)
  Receive Date: 20141024
  Receipt Date: 20141024
  Transmission Date: 20150529
  Serious: Yes (Hospitalization)
  Sender: FDA-Public Use
  Company Number: US-PERRIGO-14US010236

PATIENT
  Age: 4 Year
  Sex: Male
  Weight: 18.14 kg

DRUGS (2)
  1. CETIRIZINE 1 MG/ML BBLGM 189 [Suspect]
     Active Substance: CETIRIZINE HYDROCHLORIDE
     Dosage: 2.5 MG, PRN
     Route: 048
     Dates: start: 2014
  2. CETIRIZINE 1 MG/ML BBLGM 189 [Suspect]
     Active Substance: CETIRIZINE HYDROCHLORIDE
     Indication: HYPERSENSITIVITY
     Dosage: 2.5 MG, QD
     Route: 048
     Dates: start: 20140908, end: 20140909

REACTIONS (10)
  - Blood creatine phosphokinase MB increased [Not Recovered/Not Resolved]
  - Arthralgia [Unknown]
  - Muscle injury [Recovered/Resolved]
  - Carbon dioxide increased [Not Recovered/Not Resolved]
  - Blood sodium increased [Unknown]
  - Pain in extremity [Unknown]
  - Blood pH decreased [Not Recovered/Not Resolved]
  - Hypoaesthesia [Unknown]
  - Blood urea increased [Not Recovered/Not Resolved]
  - Blood creatinine increased [Not Recovered/Not Resolved]

NARRATIVE: CASE EVENT DATE: 201409
